FAERS Safety Report 9517235 (Version 1)
Quarter: 2013Q1

REPORT INFORMATION
  Report Type: Spontaneous
  Country: US (occurrence: None)
  Receive Date: 20130305
  Receipt Date: 20130305
  Transmission Date: 20140127
  Serious: Yes (Hospitalization)
  Sender: FDA-Public Use
  Company Number: 163-21880-12113634

PATIENT
  Age: 52 Year
  Sex: Female

DRUGS (9)
  1. REVLIMID [Suspect]
     Indication: PLASMA CELL MYELOMA
     Route: 048
     Dates: start: 20110701
  2. ALDACTONE (SPIRONOLACTONE) [Concomitant]
  3. CALTRATE (CALCIUM CARBONATE) [Concomitant]
  4. COREG (CARVEDILOL) [Concomitant]
  5. DEXAMETHASONE (DEXAMETHASONE) [Concomitant]
  6. MAGNESIUM (MAGNESIUM) [Concomitant]
  7. NEURONTIN (GABAPENTIN) [Concomitant]
  8. NORVASC (AMLODIPINE BESILATE) [Concomitant]
  9. VELCADE (BORTEZOMIB) [Concomitant]

REACTIONS (4)
  - Back pain [None]
  - Full blood count decreased [None]
  - Diarrhoea [None]
  - Pain in extremity [None]
